FAERS Safety Report 4295887-X (Version None)
Quarter: 2004Q1

REPORT INFORMATION
  Report Type: 
  Country: None (occurrence: None)
  Receive Date: 20040216
  Receipt Date: 20031201
  Transmission Date: 20041129
  Serious: No
  Sender: FDA-Public Use
  Company Number: US-GLAXOSMITHKLINE-A0441489A

PATIENT
  Age: 55 Year

DRUGS (1)
  1. LAMICTAL [Suspect]
     Indication: BIPOLAR DISORDER
     Dosage: .5TAB TWICE PER DAY
     Route: 048
     Dates: start: 20031117, end: 20031101

REACTIONS (1)
  - RASH [None]
